FAERS Safety Report 5788434-4 (Version None)
Quarter: 2008Q2

REPORT INFORMATION
  Report Type: 
  Country: None (occurrence: None)
  Receive Date: 20080623
  Receipt Date: 20080609
  Transmission Date: 20081010
  Serious: Yes (Hospitalization)
  Sender: FDA-Public Use
  Company Number: 2008AL005140

PATIENT
  Age: 95 Year
  Sex: Female
  Weight: 47.6277 kg

DRUGS (11)
  1. DIGOXIN [Suspect]
     Dosage: 0.125 MG, DAILY, PO
     Route: 048
  2. FLOMAX [Concomitant]
  3. PLAVIX [Concomitant]
  4. ASPIRIN [Concomitant]
  5. VITAMIN [Concomitant]
  6. LIPITOR [Concomitant]
  7. LISINOPRIL [Concomitant]
  8. PRILOSEC [Concomitant]
  9. CALCIUM [Concomitant]
  10. TOPROL-XL [Concomitant]
  11. LASIX [Concomitant]

REACTIONS (7)
  - ABDOMINAL PAIN UPPER [None]
  - DIZZINESS [None]
  - FALL [None]
  - NAUSEA [None]
  - PAIN IN EXTREMITY [None]
  - VISUAL DISTURBANCE [None]
  - VOMITING [None]
